FAERS Safety Report 4914489-2 (Version None)
Quarter: 2006Q1

REPORT INFORMATION
  Report Type: 
  Country: None (occurrence: None)
  Receive Date: 20060113
  Receipt Date: 20050927
  Transmission Date: 20060701
  Serious: No
  Sender: FDA-Public Use
  Company Number: 2005SP001264

PATIENT
  Age: 50 Year
  Sex: Female
  Weight: 47.6277 kg

DRUGS (7)
  1. LUNESTA [Suspect]
     Indication: FIBROMYALGIA
     Dosage: 2 MG;HS;ORAL ; 1 MG;HS;ORAL
     Route: 048
     Dates: start: 20050401, end: 20050501
  2. LUNESTA [Suspect]
     Indication: INSOMNIA
     Dosage: 2 MG;HS;ORAL ; 1 MG;HS;ORAL
     Route: 048
     Dates: start: 20050401, end: 20050501
  3. LUNESTA [Suspect]
     Indication: FIBROMYALGIA
     Dosage: 2 MG;HS;ORAL ; 1 MG;HS;ORAL
     Route: 048
     Dates: start: 20050501
  4. LUNESTA [Suspect]
     Indication: INSOMNIA
     Dosage: 2 MG;HS;ORAL ; 1 MG;HS;ORAL
     Route: 048
     Dates: start: 20050501
  5. DURAGESIC-100 [Concomitant]
  6. MEDROL [Concomitant]
  7. KLONOPIN [Concomitant]

REACTIONS (2)
  - CHEST PAIN [None]
  - DYSPEPSIA [None]
